FAERS Safety Report 8442982 (Version 6)
Quarter: 2015Q3

REPORT INFORMATION
  Report Type: Spontaneous
  Country: CA (occurrence: CA)
  Receive Date: 20120306
  Receipt Date: 20150720
  Transmission Date: 20151125
  Serious: Yes (Other)
  Sender: FDA-Public Use
  Company Number: CA-ROCHE-1044893

PATIENT
  Age: 41 Year
  Sex: Female
  Weight: 65 kg

DRUGS (12)
  1. XOLAIR [Suspect]
     Active Substance: OMALIZUMAB
     Indication: ASTHMA
     Route: 058
     Dates: start: 20080315
  2. CETIRIZINE [Concomitant]
     Active Substance: CETIRIZINE HYDROCHLORIDE
  3. XOLAIR [Suspect]
     Active Substance: OMALIZUMAB
     Route: 058
     Dates: start: 20090929
  4. ZITHROMAX [Concomitant]
     Active Substance: AZITHROMYCIN DIHYDRATE
  5. XOLAIR [Suspect]
     Active Substance: OMALIZUMAB
     Route: 058
     Dates: start: 20090413
  6. ALLEGRA [Concomitant]
     Active Substance: FEXOFENADINE HYDROCHLORIDE
  7. VENTOLIN [Concomitant]
     Active Substance: ALBUTEROL SULFATE
  8. SINGULAIR [Concomitant]
     Active Substance: MONTELUKAST SODIUM
  9. XOLAIR [Suspect]
     Active Substance: OMALIZUMAB
     Route: 058
     Dates: start: 20090707
  10. XOLAIR [Suspect]
     Active Substance: OMALIZUMAB
     Route: 058
     Dates: start: 20091027
  11. XOLAIR [Suspect]
     Active Substance: OMALIZUMAB
     Route: 058
     Dates: start: 20100113
  12. FLOVENT [Concomitant]
     Active Substance: FLUTICASONE PROPIONATE

REACTIONS (19)
  - Dyspnoea exertional [Recovering/Resolving]
  - Influenza [Unknown]
  - Heart rate decreased [Unknown]
  - Seasonal allergy [Unknown]
  - Pulmonary congestion [Unknown]
  - Bronchitis [Recovering/Resolving]
  - Streptococcus test positive [Unknown]
  - Cough [Unknown]
  - Blood pressure decreased [Unknown]
  - Sinusitis [Recovering/Resolving]
  - General physical condition abnormal [Unknown]
  - Pneumonia [Recovering/Resolving]
  - Pharyngeal oedema [Unknown]
  - Respiratory tract congestion [Unknown]
  - Headache [Unknown]
  - Nasopharyngitis [Unknown]
  - Aphonia [Unknown]
  - Nasal discharge discolouration [Unknown]
  - Productive cough [Unknown]

NARRATIVE: CASE EVENT DATE: 200912
